FAERS Safety Report 6182515-1 (Version None)
Quarter: 2009Q2

REPORT INFORMATION
  Report Type: 
  Country: None (occurrence: None)
  Receive Date: 20090507
  Receipt Date: 20090501
  Transmission Date: 20091009
  Serious: Yes (Other)
  Sender: FDA-Public Use
  Company Number: US-ROCHE-630950

PATIENT
  Age: 60 Year
  Sex: Male

DRUGS (3)
  1. VALIUM [Suspect]
     Indication: ANXIETY
     Dosage: TAKEN AS NEEDED ON AND OFF FOR A COUPLE OF YEARS
     Route: 065
  2. DILTIAZEM [Concomitant]
  3. WARFARIN [Concomitant]

REACTIONS (1)
  - ARRHYTHMIA [None]
